FAERS Safety Report 8132735-1 (Version None)
Quarter: 2012Q1

REPORT INFORMATION
  Report Type: 
  Country: None (occurrence: None)
  Receive Date: 20120213
  Receipt Date: 20120207
  Transmission Date: 20120608
  Serious: Yes (Hospitalization)
  Sender: FDA-Public Use
  Company Number: US-BAYER-2011-120799

PATIENT
  Age: 27 Year
  Sex: Female
  Weight: 79.819 kg

DRUGS (1)
  1. BEYAZ [Suspect]
     Indication: CONTRACEPTION
     Dosage: UNK
     Route: 048
     Dates: start: 20100401, end: 20111214

REACTIONS (4)
  - CHEST PAIN [None]
  - NECK PAIN [None]
  - PULMONARY EMBOLISM [None]
  - BACK PAIN [None]
